FAERS Safety Report 21712505 (Version 1)
Quarter: 2022Q4

REPORT INFORMATION
  Report Type: Spontaneous
  Country: US (occurrence: None)
  Receive Date: 20221208
  Receipt Date: 20221208
  Transmission Date: 20230112
  Serious: Yes (Death)
  Sender: FDA-Public Use
  Company Number: None

PATIENT
  Age: 79 Year
  Sex: Male
  Weight: 84.19 kg

DRUGS (26)
  1. LENALIDOMIDE [Suspect]
     Active Substance: LENALIDOMIDE
     Indication: Plasma cell myeloma
     Dosage: 15MG 21D ON 7D OFF ORAL?
     Route: 048
     Dates: start: 202212
  2. DEXAMETHASONE [Suspect]
     Active Substance: DEXAMETHASONE
     Indication: Plasma cell myeloma
     Dosage: 20MG  D1,8,15,22 ORAL ?
     Route: 048
     Dates: start: 202212
  3. ASPIRIN [Concomitant]
     Active Substance: ASPIRIN
  4. ATENOLOL [Concomitant]
     Active Substance: ATENOLOL
  5. CHLORHEXIDINE [Concomitant]
     Active Substance: CHLORHEXIDINE
  6. DEXAMETHASONE [Concomitant]
     Active Substance: DEXAMETHASONE
  7. FINASTERIDE [Concomitant]
     Active Substance: FINASTERIDE
  8. FOLIC ACID [Concomitant]
     Active Substance: FOLIC ACID
  9. JANUVIA [Concomitant]
     Active Substance: SITAGLIPTIN PHOSPHATE
  10. LANSORAZOLE [Concomitant]
  11. LOPERAMIDE [Concomitant]
     Active Substance: LOPERAMIDE
  12. LOSARTAN [Concomitant]
     Active Substance: LOSARTAN
  13. MAGOX [Concomitant]
  14. MEROPENEM [Concomitant]
     Active Substance: MEROPENEM
  15. MIRTAZAPINE [Concomitant]
     Active Substance: MIRTAZAPINE
  16. VITAMINS [Concomitant]
     Active Substance: VITAMINS
  17. OMEPRAZOLE [Concomitant]
     Active Substance: OMEPRAZOLE
  18. POLYETHYLENE GLYCOL 3350 [Concomitant]
     Active Substance: POLYETHYLENE GLYCOL 3350
  19. POTASSIUM CHLORIDE [Concomitant]
     Active Substance: POTASSIUM CHLORIDE
  20. PRAVASTATIN [Concomitant]
     Active Substance: PRAVASTATIN
  21. PROZAC [Concomitant]
     Active Substance: FLUOXETINE HYDROCHLORIDE
  22. SODIUM CHLORIDE [Concomitant]
     Active Substance: SODIUM CHLORIDE
  23. TAMSULOSIN [Concomitant]
     Active Substance: TAMSULOSIN
  24. VITAMIN B1 [Concomitant]
     Active Substance: THIAMINE HYDROCHLORIDE
  25. VITAMIN B12 [Concomitant]
     Active Substance: CYANOCOBALAMIN
  26. VITAMIN D3 [Concomitant]
     Active Substance: CHOLECALCIFEROL

REACTIONS (1)
  - Death [None]
